FAERS Safety Report 15941817 (Version 1)
Quarter: 2019Q1

REPORT INFORMATION
  Report Type: Spontaneous
  Country: US (occurrence: US)
  Receive Date: 20190210
  Receipt Date: 20190210
  Transmission Date: 20190417
  Serious: Yes (Disabling)
  Sender: FDA-Public Use
  Company Number: None

PATIENT
  Age: 42 Year
  Sex: Female
  Weight: 64.41 kg

DRUGS (14)
  1. TRAMADOL. [Concomitant]
     Active Substance: TRAMADOL
  2. MELOXICAM. [Concomitant]
     Active Substance: MELOXICAM
  3. PREMARIN [Concomitant]
     Active Substance: ESTROGENS, CONJUGATED
  4. CALCIUM [Concomitant]
     Active Substance: CALCIUM
  5. CLONAZEPAM. [Concomitant]
     Active Substance: CLONAZEPAM
  6. VITAMIN D3 [Concomitant]
     Active Substance: CHOLECALCIFEROL
  7. FISH OIL [Concomitant]
     Active Substance: FISH OIL
  8. NALTREXONE [Concomitant]
     Active Substance: NALTREXONE
  9. PROBIOTIC [Concomitant]
     Active Substance: PROBIOTICS NOS
  10. BUPROPION. [Concomitant]
     Active Substance: BUPROPION
  11. CYCLOBENZAPRINE. [Concomitant]
     Active Substance: CYCLOBENZAPRINE
  12. ZOLPIDEM [Concomitant]
     Active Substance: ZOLPIDEM\ZOLPIDEM TARTRATE
  13. MIRENA [Suspect]
     Active Substance: LEVONORGESTREL
     Dates: start: 20171103, end: 20180308
  14. FOSTANX [Concomitant]

REACTIONS (10)
  - Pelvic pain [None]
  - Vulvovaginal pain [None]
  - Dyspareunia [None]
  - Atrophic vulvovaginitis [None]
  - Procedural pain [None]
  - Abdominal pain lower [None]
  - Bacterial vulvovaginitis [None]
  - Device related infection [None]
  - Menorrhagia [None]
  - Neck pain [None]

NARRATIVE: CASE EVENT DATE: 20171103
